FAERS Safety Report 17188175 (Version 1)
Quarter: 2019Q4

REPORT INFORMATION
  Report Type: Spontaneous
  Country: FR (occurrence: FR)
  Receive Date: 20191221
  Receipt Date: 20191221
  Transmission Date: 20200122
  Serious: Yes (Hospitalization)
  Sender: FDA-Public Use
  Company Number: FR-TEVA-2019-FR-1154770

PATIENT
  Age: 76 Year
  Sex: Female

DRUGS (10)
  1. KARDEGIC [Suspect]
     Active Substance: ASPIRIN DL-LYSINE
     Indication: PRODUCT USED FOR UNKNOWN INDICATION
     Dosage: 75 MILLIGRAM
     Route: 048
     Dates: end: 20191024
  2. BIPROFENID LP 100 MG, COMPRIM? S?CABLE ? LIB?RATION PROLONG?E [Suspect]
     Active Substance: KETOPROFEN
     Indication: PRODUCT USED FOR UNKNOWN INDICATION
     Dosage: 200 MILLIGRAM
     Route: 048
     Dates: start: 20191021, end: 20191024
  3. ESCITALOPRAM [Suspect]
     Active Substance: ESCITALOPRAM OXALATE
     Indication: MAJOR DEPRESSION
     Dosage: 10 MILLIGRAM
     Route: 048
     Dates: end: 20191024
  4. PARACETAMOL [Concomitant]
     Active Substance: ACETAMINOPHEN
  5. BROMAZEPAM [Suspect]
     Active Substance: BROMAZEPAM
     Indication: PRODUCT USED FOR UNKNOWN INDICATION
     Dosage: 1.5 MILLIGRAM
     Route: 048
     Dates: end: 20191024
  6. METFORMINE [Concomitant]
     Active Substance: METFORMIN HYDROCHLORIDE
  7. ACUPAN [Suspect]
     Active Substance: NEFOPAM HYDROCHLORIDE
     Indication: PAIN
     Dosage: 20 MILLIGRAM
     Route: 048
     Dates: start: 20191020
  8. PANTOPRAZOLE [Concomitant]
     Active Substance: PANTOPRAZOLE
  9. LOVENOX [Suspect]
     Active Substance: ENOXAPARIN SODIUM
     Indication: THROMBOSIS PROPHYLAXIS
     Dosage: 0.4 ML
     Route: 058
     Dates: start: 20191020, end: 20191023
  10. FLUVASTATINE SODIQUE [Concomitant]
     Active Substance: FLUVASTATIN SODIUM

REACTIONS (3)
  - Metabolic acidosis [Unknown]
  - Hyperkalaemia [Unknown]
  - Renal failure [Unknown]

NARRATIVE: CASE EVENT DATE: 20191024
